FAERS Safety Report 12076938 (Version 1)
Quarter: 2016Q1

REPORT INFORMATION
  Report Type: Spontaneous
  Country: FR (occurrence: FR)
  Receive Date: 20160215
  Receipt Date: 20160215
  Transmission Date: 20160526
  Serious: Yes (Life-Threatening, Other)
  Sender: FDA-Public Use
  Company Number: FR-ASTRAZENECA-2016SE15703

PATIENT
  Sex: Female

DRUGS (6)
  1. LAMICTAL [Suspect]
     Active Substance: LAMOTRIGINE
     Route: 065
     Dates: start: 20150222, end: 20151001
  2. XEROQUEL [Suspect]
     Active Substance: QUETIAPINE FUMARATE
     Route: 048
     Dates: start: 20150222, end: 20151001
  3. ZOLOFT [Suspect]
     Active Substance: SERTRALINE HYDROCHLORIDE
     Route: 065
     Dates: start: 20150222, end: 20151001
  4. STILNOX [Suspect]
     Active Substance: ZOLPIDEM TARTRATE
     Route: 065
     Dates: start: 20150222, end: 20151001
  5. KEPPRA [Suspect]
     Active Substance: LEVETIRACETAM
     Route: 065
     Dates: start: 20150222, end: 20151001
  6. TERCIAN [Suspect]
     Active Substance: CYAMEMAZINE
     Route: 065
     Dates: start: 20150222, end: 20151001

REACTIONS (2)
  - Exposure during pregnancy [Unknown]
  - Suicide attempt [Unknown]
